FAERS Safety Report 18063233 (Version 2)
Quarter: 2024Q3

REPORT INFORMATION
  Report Type: Report from Study
  Country: US (occurrence: US)
  Receive Date: 20200724
  Receipt Date: 20240701
  Transmission Date: 20241017
  Serious: Yes (Death, Other)
  Sender: ACADIA PHARMACEUTICALS
  Company Number: US-ACADIA PHARMACEUTICALS INC.-ACA-2020-PIM-002193

PATIENT
  Age: 65 Year
  Sex: Male

DRUGS (5)
  1. NUPLAZID [Suspect]
     Active Substance: PIMAVANSERIN TARTRATE
     Indication: Parkinson^s disease
     Dosage: 34 MILLIGRAM, QD
     Route: 048
     Dates: start: 201810
  2. NOURIANZ [Concomitant]
     Active Substance: ISTRADEFYLLINE
     Indication: Product used for unknown indication
  3. INBRIJA [Concomitant]
     Active Substance: LEVODOPA
     Indication: Product used for unknown indication
  4. MINERALS\VITAMINS [Concomitant]
     Active Substance: MINERALS\VITAMINS
  5. GOCOVRI [Concomitant]
     Active Substance: AMANTADINE

REACTIONS (2)
  - Death [Fatal]
  - Insomnia [Unknown]

NARRATIVE: CASE EVENT DATE: 20240601
